FAERS Safety Report 9500747 (Version 1)
Quarter: 2013Q1

REPORT INFORMATION
  Report Type: Spontaneous
  Country: US (occurrence: None)
  Receive Date: 20130110
  Receipt Date: 20130110
  Transmission Date: 20140127
  Serious: Yes (Other)
  Sender: FDA-Public Use
  Company Number: 1171309

PATIENT
  Age: 74 Year
  Sex: Male
  Weight: 68.18 kg

DRUGS (3)
  1. DEMEROL [Suspect]
     Indication: SEDATION
     Dosage: 50 MG, X1 TITRATED SLOWLY, INTRAVENOUS (NOT OTHERWISE SPECIFIED)
     Route: 042
     Dates: start: 20120120, end: 20120120
  2. DEMEROL [Suspect]
     Dosage: 50 MG, X1 TITRATED SLOWLY, INTRAVENOUS (NOT OTHERWISE SPECIFIED)
     Route: 042
     Dates: start: 20120120, end: 20120120
  3. MIDAZOLAM [Suspect]
     Indication: SEDATION
     Dosage: 2 MG, X1 TITRATED SLOWLY, INTRAVENOUS (NOT OTHERWISE SPECIFIED)
     Route: 042
     Dates: start: 20120120, end: 20120120

REACTIONS (1)
  - Unresponsive to stimuli [None]
